FAERS Safety Report 7036821-9 (Version None)
Quarter: 2010Q4

REPORT INFORMATION
  Report Type: 
  Country: None (occurrence: None)
  Receive Date: 20101011
  Receipt Date: 20101004
  Transmission Date: 20110411
  Serious: Yes (Hospitalization)
  Sender: FDA-Public Use
  Company Number: US-ELI_LILLY_AND_COMPANY-US201006007657

PATIENT
  Sex: Male

DRUGS (15)
  1. HUMALOG [Suspect]
     Dosage: 15 U, 3/D
  2. HUMALOG [Suspect]
     Dosage: 15 U, 3/D
  3. HUMULIN 70/30 [Suspect]
  4. LANTUS [Concomitant]
     Dosage: 30 U, EACH EVENING
  5. COZAAR [Concomitant]
  6. METOPROLOL TARTRATE [Concomitant]
  7. SYNTHROID [Concomitant]
  8. FUROSEMIDE [Concomitant]
  9. PLAVIX [Concomitant]
  10. TRILIPIX [Concomitant]
  11. CRESTOR [Concomitant]
  12. ASPIRIN [Concomitant]
  13. VITAMIN E [Concomitant]
  14. VITAMIN D [Concomitant]
  15. VITAMIN B [Concomitant]

REACTIONS (3)
  - ANXIETY [None]
  - CORONARY ARTERY OCCLUSION [None]
  - MALAISE [None]
